FAERS Safety Report 8332376-7 (Version None)
Quarter: 2012Q1

REPORT INFORMATION
  Report Type: 
  Country: None (occurrence: None)
  Receive Date: 20120315
  Receipt Date: 20110314
  Transmission Date: 20120608
  Serious: No
  Sender: FDA-Public Use
  Company Number: PHHY2011US14506

PATIENT
  Age: 36 Year
  Sex: Male

DRUGS (6)
  1. GILENYA [Suspect]
     Indication: MULTIPLE SCLEROSIS
     Dosage: 0.5 MG, QD
     Dates: end: 20110213
  2. EFFEXOR [Concomitant]
  3. GABAPENTIN [Concomitant]
  4. CLONAZEPAM [Concomitant]
  5. MULTIVITAMINS (ASCORBIC ACID, ERGOCALCIFEROL, FOLIC ACID, NICOTINAMIDE [Concomitant]
  6. LISINOPRIL [Concomitant]

REACTIONS (3)
  - SLEEP DISORDER [None]
  - DYSKINESIA [None]
  - PAIN [None]
